FAERS Safety Report 21383812 (Version 1)
Quarter: 2022Q3

REPORT INFORMATION
  Report Type: Spontaneous
  Country: IT (occurrence: IT)
  Receive Date: 20220928
  Receipt Date: 20220928
  Transmission Date: 20221027
  Serious: Yes (Other)
  Sender: FDA-Public Use
  Company Number: IT-CHEPLA-2022008102

PATIENT
  Age: 49 Year
  Sex: Female

DRUGS (15)
  1. ETOPOSIDE [Suspect]
     Active Substance: ETOPOSIDE
     Indication: Diffuse large B-cell lymphoma
  2. GANCICLOVIR [Suspect]
     Active Substance: GANCICLOVIR
     Indication: Human herpesvirus 6 infection
  3. FOTEMUSTINE [Suspect]
     Active Substance: FOTEMUSTINE
  4. CYTARABINE [Suspect]
     Active Substance: CYTARABINE
  5. CYTARABINE [Suspect]
     Active Substance: CYTARABINE
     Dosage: TWO CYCLES OF SALVAGE CHEMOTHERAPY WITH R-DHAOX
  6. MELPHALAN [Suspect]
     Active Substance: MELPHALAN
  7. RITUXIMAB [Concomitant]
     Active Substance: RITUXIMAB
     Dosage: 5 CYCLES OF R-CHOP
  8. RITUXIMAB [Concomitant]
     Active Substance: RITUXIMAB
     Dosage: TWO CYCLES OF SALVAGE CHEMOTHERAPY WITH R-DHAOX
  9. CYCLOPHOSPHAMIDE [Concomitant]
     Active Substance: CYCLOPHOSPHAMIDE
     Dosage: 5 CYCLES OF R-CHOP
  10. DOXORUBICIN [Concomitant]
     Active Substance: DOXORUBICIN
     Dosage: 5 CYCLES OF R-CHOP
  11. VINCRISTINE [Concomitant]
     Active Substance: VINCRISTINE
     Dosage: 5 CYCLES OF R-CHOP
  12. METHOTREXATE [Concomitant]
     Active Substance: METHOTREXATE
     Indication: Prophylaxis
     Dosage: 1 CYCLE, HIGH DOSE
  13. OXALIPLATIN [Concomitant]
     Active Substance: OXALIPLATIN
     Dosage: TWO CYCLES OF SALVAGE CHEMOTHERAPY WITH R-DHAOX
  14. THIOTEPA [Concomitant]
     Active Substance: THIOTEPA
  15. DAPTOMYCIN [Concomitant]
     Active Substance: DAPTOMYCIN
     Indication: Staphylococcal sepsis

REACTIONS (4)
  - Thrombocytopenia [Recovered/Resolved]
  - Leukaemia [Unknown]
  - Anaemia [Recovered/Resolved]
  - Product use in unapproved indication [Unknown]
